FAERS Safety Report 8047724-5 (Version None)
Quarter: 2012Q1

REPORT INFORMATION
  Report Type: 
  Country: None (occurrence: None)
  Receive Date: 20120116
  Receipt Date: 20120110
  Transmission Date: 20120608
  Serious: Yes (Death)
  Sender: FDA-Public Use
  Company Number: CHPA2011US018679

PATIENT
  Age: 84 Year
  Sex: Male

DRUGS (1)
  1. KERI ORIGINAL [Suspect]
     Indication: THERAPEUTIC SKIN CARE TOPICAL
     Dosage: UNK, UNK
     Route: 061
     Dates: start: 19700101, end: 20070101

REACTIONS (1)
  - BONE NEOPLASM MALIGNANT [None]
